FAERS Safety Report 13602033 (Version 4)
Quarter: 2017Q3

REPORT INFORMATION
  Report Type: Report from Study
  Country: IT (occurrence: IT)
  Receive Date: 20170601
  Receipt Date: 20170907
  Transmission Date: 20171127
  Serious: Yes (Other)
  Sender: FDA-Public Use
  Company Number: IT-PFIZER INC-2017238941

PATIENT
  Age: 13 Year
  Sex: Male

DRUGS (10)
  1. ERWINASE [Suspect]
     Active Substance: ASPARAGINASE ERWINIA CHRYSANTHEMI
     Indication: ACUTE LYMPHOCYTIC LEUKAEMIA
     Dosage: 29400 IU, CYCLIC
     Route: 042
     Dates: start: 20170126, end: 20170130
  2. GLIVEC [Suspect]
     Active Substance: IMATINIB MESYLATE
     Dosage: 400 MG, ALTERNATE DAY
     Route: 048
     Dates: start: 20170102
  3. BACTRIM [Concomitant]
     Active Substance: SULFAMETHOXAZOLE\TRIMETHOPRIM
     Dosage: 1 DF, 2X/DAY
  4. MYCOSTATIN [Concomitant]
     Active Substance: NYSTATIN
     Dosage: UNK
  5. ANTRA [Concomitant]
     Active Substance: OMEPRAZOLE
     Dosage: 40 MG, UNK
     Route: 042
  6. GLIVEC [Suspect]
     Active Substance: IMATINIB MESYLATE
     Indication: ACUTE LYMPHOCYTIC LEUKAEMIA
     Dosage: 500 MG, ALTERNATE DAY
     Route: 048
     Dates: start: 20170102
  7. ADRIBLASTINA [Suspect]
     Active Substance: DOXORUBICIN HYDROCHLORIDE
     Indication: ACUTE LYMPHOCYTIC LEUKAEMIA
     Dosage: 44.1 MG, CYCLIC
     Route: 042
     Dates: start: 20170123
  8. VINCRISTINE SULFATE. [Suspect]
     Active Substance: VINCRISTINE SULFATE
     Indication: ACUTE LYMPHOCYTIC LEUKAEMIA
     Dosage: 2 MG, CYCLIC
     Route: 042
     Dates: start: 20170123
  9. KCL-RETARD [Concomitant]
     Active Substance: POTASSIUM CHLORIDE
     Dosage: 4 DF, DAILY
  10. DECADRON [Concomitant]
     Active Substance: DEXAMETHASONE
     Dosage: UNK

REACTIONS (1)
  - Hypertension [Recovered/Resolved]

NARRATIVE: CASE EVENT DATE: 20170204
